FAERS Safety Report 7668329-1 (Version None)
Quarter: 2011Q3

REPORT INFORMATION
  Report Type: 
  Country: None (occurrence: None)
  Receive Date: 20110808
  Receipt Date: 20110801
  Transmission Date: 20111222
  Serious: Yes (Life-Threatening, Hospitalization, Other)
  Sender: FDA-Public Use
  Company Number: US-US-EMD SERONO, INC.-233101J10USA

PATIENT
  Sex: Female
  Weight: 77 kg

DRUGS (6)
  1. BENADRYL [Concomitant]
     Indication: PREMEDICATION
  2. CYMBALTA [Concomitant]
     Indication: NEUROPATHY PERIPHERAL
     Route: 065
  3. FLEXERIL [Concomitant]
     Indication: MUSCLE SPASMS
     Route: 065
  4. CORGARD [Concomitant]
     Indication: MIGRAINE
     Route: 065
  5. AVIANE-28 [Concomitant]
     Indication: CONTRACEPTION
     Route: 065
  6. REBIF [Suspect]
     Indication: MULTIPLE SCLEROSIS
     Route: 058
     Dates: start: 20080725

REACTIONS (9)
  - ELECTROLYTE IMBALANCE [None]
  - INJECTION SITE HAEMATOMA [None]
  - DEEP VEIN THROMBOSIS [None]
  - OPTIC NEURITIS [None]
  - PULMONARY EMBOLISM [None]
  - THROMBOSIS [None]
  - MULTIPLE SCLEROSIS RELAPSE [None]
  - INFLUENZA LIKE ILLNESS [None]
  - FATIGUE [None]
